FAERS Safety Report 7687978-8 (Version None)
Quarter: 2011Q3

REPORT INFORMATION
  Report Type: 
  Country: None (occurrence: None)
  Receive Date: 20110817
  Receipt Date: 20100802
  Transmission Date: 20111222
  Serious: Yes (Other)
  Sender: FDA-Public Use
  Company Number: US-PFIZER INC-2010097546

PATIENT
  Sex: Female
  Weight: 97.506 kg

DRUGS (5)
  1. CELEXA [Concomitant]
     Indication: DEPRESSION
  2. MULTI-VITAMINS [Concomitant]
     Dosage: UNK
  3. CELEXA [Concomitant]
     Indication: ANXIETY
     Dosage: UNK
  4. HYDROCODONE [Concomitant]
     Indication: PAIN
     Dosage: UNK, AS NEEDED
  5. LYRICA [Suspect]
     Indication: NERVE INJURY
     Dosage: 100 MG, 3X/DAY
     Route: 048
     Dates: start: 20100401

REACTIONS (1)
  - WEIGHT INCREASED [None]
